FAERS Safety Report 9859215 (Version 1)
Quarter: 2014Q1

REPORT INFORMATION
  Report Type: Spontaneous
  Country: IT (occurrence: IT)
  Receive Date: 20140131
  Receipt Date: 20140131
  Transmission Date: 20141002
  Serious: Yes (Hospitalization)
  Sender: FDA-Public Use
  Company Number: IT-BRISTOL-MYERS SQUIBB COMPANY-20069613

PATIENT
  Age: 75 Year
  Sex: Female

DRUGS (4)
  1. COUMADIN TABS 5 MG [Suspect]
     Indication: ATRIAL FIBRILLATION
     Dosage: 1DF:1UNIT
     Route: 048
     Dates: start: 20140101, end: 20140110
  2. BISOPROLOL HEMIFUMARATE [Concomitant]
     Route: 048
  3. PARIET [Concomitant]
     Dosage: 20MG TABS
     Route: 048
  4. LASITONE [Concomitant]

REACTIONS (3)
  - Haematuria [Recovered/Resolved]
  - Abdominal pain lower [Recovered/Resolved]
  - Strangury [Recovered/Resolved]
